FAERS Safety Report 9740176 (Version 1)
Quarter: 2013Q4

REPORT INFORMATION
  Report Type: Spontaneous
  Country: US (occurrence: US)
  Receive Date: 20131209
  Receipt Date: 20131209
  Transmission Date: 20140711
  Serious: Yes (Hospitalization)
  Sender: FDA-Public Use
  Company Number: US-B.I. PHARMACEUTICALS,INC./RIDGEFIELD-2013-BI-40406BP

PATIENT
  Age: 61 Year
  Sex: Male
  Weight: 121 kg

DRUGS (1)
  1. PRADAXA [Suspect]
     Indication: ATRIAL FIBRILLATION
     Dosage: 300 MG
     Route: 048
     Dates: start: 201010

REACTIONS (6)
  - Pain in extremity [Recovered/Resolved]
  - Erythema [Recovered/Resolved]
  - Infection [Recovered/Resolved]
  - Nephrolithiasis [Recovered/Resolved]
  - Balance disorder [Recovered/Resolved]
  - Neuropathy peripheral [Not Recovered/Not Resolved]
